FAERS Safety Report 4520685-9 (Version None)
Quarter: 2004Q4

REPORT INFORMATION
  Report Type: 
  Country: None (occurrence: None)
  Receive Date: 20041207
  Receipt Date: 20041012
  Transmission Date: 20050328
  Serious: Yes (Other)
  Sender: FDA-Public Use
  Company Number: GB-MERCK-0410GBR00130

PATIENT
  Age: 82 Year
  Sex: Female

DRUGS (9)
  1. ZETIA [Suspect]
     Indication: BLOOD CHOLESTEROL INCREASED
     Route: 048
     Dates: start: 20040712, end: 20040915
  2. RAMIPRIL [Concomitant]
     Route: 065
  3. ACETAMINOPHEN [Concomitant]
     Route: 065
  4. ATENOLOL [Concomitant]
     Route: 065
  5. ASPIRIN [Concomitant]
     Route: 065
  6. AMLODIPINE MALEATE [Concomitant]
     Route: 065
  7. ISOSORBIDE MONONITRATE [Concomitant]
     Route: 065
  8. DOXAZOSIN MESYLATE [Concomitant]
     Route: 065
  9. FUROSEMIDE [Concomitant]
     Route: 065

REACTIONS (2)
  - BLOOD CREATININE INCREASED [None]
  - DIARRHOEA [None]
